FAERS Safety Report 6575480-6 (Version None)
Quarter: 2010Q1

REPORT INFORMATION
  Report Type: 
  Country: None (occurrence: None)
  Receive Date: 20100209
  Receipt Date: 20100128
  Transmission Date: 20100710
  Serious: Yes (Hospitalization)
  Sender: FDA-Public Use
  Company Number: FR-PFIZER INC-2010011531

PATIENT
  Age: 87 Year
  Sex: Female

DRUGS (14)
  1. ALDACTONE [Suspect]
     Dosage: 25 MG, 1X/DAY
     Route: 048
     Dates: start: 20091109, end: 20091117
  2. FUROSEMIDE [Suspect]
     Dosage: 2 DF, DAILY
     Route: 048
     Dates: start: 20091109, end: 20091117
  3. TRIMEBUTINE MALEATE [Suspect]
     Dosage: 6 DF, DAILY
     Route: 048
     Dates: start: 20091109, end: 20091117
  4. CARDENSIEL [Suspect]
     Dosage: 1.25 MG, 1X/DAY
     Route: 048
     Dates: start: 20091109
  5. VALSARTAN AND HYDROCHLOROTHIAZIDE [Suspect]
     Dosage: 1 DF, 1X/DAY
     Route: 048
     Dates: start: 20091109, end: 20091117
  6. MEMANTINE [Suspect]
     Dosage: 10 MG, 1X/DAY
     Route: 048
     Dates: start: 20090511, end: 20091117
  7. DOMPERIDONE [Suspect]
     Dosage: 3 DF, DAILY
     Route: 048
     Dates: start: 20091109, end: 20091117
  8. FORLAX [Suspect]
     Dosage: UNK DF, UNK
     Route: 048
     Dates: start: 20091109, end: 20091117
  9. DIFFU K [Suspect]
     Dosage: 6 DF, DAILY
     Route: 048
     Dates: start: 20091109, end: 20091117
  10. TOPALGIC [Concomitant]
  11. PREVISCAN [Concomitant]
  12. NEXIUM [Concomitant]
  13. DAFALGAN [Concomitant]
  14. ZOLPIDEM [Concomitant]

REACTIONS (4)
  - BRADYCARDIA [None]
  - CYANOSIS [None]
  - DEHYDRATION [None]
  - RENAL FAILURE ACUTE [None]
